FAERS Safety Report 11140611 (Version 1)
Quarter: 2015Q2

REPORT INFORMATION
  Report Type: Spontaneous
  Country: US (occurrence: US)
  Receive Date: 20150527
  Receipt Date: 20150527
  Transmission Date: 20150821
  Serious: No
  Sender: FDA-Public Use
  Company Number: US-MALLINCKRODT-QSC-2014-0792

PATIENT
  Age: 51 Year
  Sex: Female

DRUGS (4)
  1. ENABLEX [Concomitant]
     Active Substance: DARIFENACIN\DARIFENACIN HYDROBROMIDE
     Dosage: UNK
  2. H.P. ACTHAR [Suspect]
     Active Substance: CORTICOTROPIN
     Indication: POLYMYOSITIS
     Dosage: 80 UNITS, BIW
     Route: 058
     Dates: start: 20140610
  3. SYNTHROID [Concomitant]
     Active Substance: LEVOTHYROXINE SODIUM
     Dosage: UNK
  4. TECFIDERA [Concomitant]
     Active Substance: DIMETHYL FUMARATE
     Dosage: UNK

REACTIONS (1)
  - Aldolase increased [Unknown]

NARRATIVE: CASE EVENT DATE: 20141007
